FAERS Safety Report 19713720 (Version 2)
Quarter: 2021Q3

REPORT INFORMATION
  Report Type: Other
  Country: GB (occurrence: GB)
  Receive Date: 20210818
  Receipt Date: 20210823
  Transmission Date: 20211014
  Serious: Yes (Other)
  Sender: FDA-Public Use
  Company Number: GB-CELLTRION INC.-2021GB011044

PATIENT

DRUGS (3)
  1. INFLIXIMAB [Suspect]
     Active Substance: INFLIXIMAB
     Indication: ILL-DEFINED DISORDER
  2. INFLIXIMAB [Suspect]
     Active Substance: INFLIXIMAB
     Indication: ILL-DEFINED DISORDER
     Dosage: UNK
     Dates: start: 20210806, end: 20210806
  3. INFLIXIMAB [Suspect]
     Active Substance: INFLIXIMAB
     Indication: COLITIS ULCERATIVE
     Dosage: 300 MG, 1X/DAY
     Route: 042
     Dates: start: 20210806, end: 20210806

REACTIONS (4)
  - Myalgia [Recovering/Resolving]
  - Headache [Recovering/Resolving]
  - Off label use [Unknown]
  - Arthralgia [Recovering/Resolving]

NARRATIVE: CASE EVENT DATE: 20210806
